FAERS Safety Report 12222134 (Version 1)
Quarter: 2016Q1

REPORT INFORMATION
  Report Type: Spontaneous
  Country: CA (occurrence: CA)
  Receive Date: 20160330
  Receipt Date: 20160330
  Transmission Date: 20160526
  Serious: Yes (Other)
  Sender: FDA-Public Use
  Company Number: CA-JNJFOC-20160209670

PATIENT
  Age: 61 Year
  Sex: Female
  Weight: 80 kg

DRUGS (29)
  1. INSULIN RAPID [Concomitant]
     Active Substance: INSULIN NOS
     Route: 065
  2. EURO D [Concomitant]
     Dosage: ON MONDAY; IN THE MORNING
     Route: 065
  3. ACTONEL [Concomitant]
     Active Substance: RISEDRONATE SODIUM
     Indication: OSTEOPOROSIS
     Dosage: ON MONDAY MORNING 30 MINUTES WITH BREAKFAST, WITH A BIG GLASS OF WATER
     Route: 065
  4. LANTUS [Concomitant]
     Active Substance: INSULIN GLARGINE
     Dosage: LANTUS CARTRIDGE 3ML; 100 U/ML INSULIN-U; AT BEDTIME REGULARLY
     Route: 065
  5. ATORVASTATIN [Concomitant]
     Active Substance: ATORVASTATIN
     Indication: BLOOD CHOLESTEROL ABNORMAL
     Dosage: IN THE MORNING REGULARLY
     Route: 065
  6. ESTRACE [Concomitant]
     Active Substance: ESTRADIOL
     Dosage: AT BEDTIME
     Route: 065
  7. NOVO-GESIC [Concomitant]
     Indication: PAIN
     Dosage: 1-2 TABLETS 4 TIMES A DAY IF NEEDED (MAXIMUM OF 8 TABLETS/24 HOURS)
     Route: 065
  8. SPIRIVA [Concomitant]
     Active Substance: TIOTROPIUM BROMIDE MONOHYDRATE
     Dosage: IN THE MORNING FOR BRONCHI
     Route: 055
  9. LIPITOR [Concomitant]
     Active Substance: ATORVASTATIN CALCIUM
     Indication: DYSLIPIDAEMIA
     Route: 065
  10. LANTUS [Concomitant]
     Active Substance: INSULIN GLARGINE
     Route: 065
  11. FENOFIBRATE. [Concomitant]
     Active Substance: FENOFIBRATE
     Indication: BLOOD CHOLESTEROL ABNORMAL
     Dosage: WITH THE BIGGEST MEAL OF THE DAY FOR CHOLESTEROL/FAT
     Route: 065
  12. LORAZEPAM. [Concomitant]
     Active Substance: LORAZEPAM
     Indication: ANXIETY
     Dosage: 1 TABLET 4 TIMES A DAY IF NEEDED
     Route: 065
  13. SALBUTAMOL [Concomitant]
     Active Substance: ALBUTEROL
     Indication: DYSPNOEA
     Dosage: SALBUTALMOL HFA 100 MCG; 2 INHALATION 4 TIMES A DAY IF NEEDED
     Route: 055
  14. TERCONAZOLE. [Concomitant]
     Active Substance: TERCONAZOLE
     Dosage: ONE APPLICATION AT BEDTIME FOR 7 COSECUTIVE DAYS
     Route: 067
  15. QUININE [Concomitant]
     Active Substance: QUININE
     Indication: MUSCLE SPASMS
     Dosage: AT BEDTIME
     Route: 065
  16. OLMETEC PLUS [Concomitant]
     Active Substance: HYDROCHLOROTHIAZIDE\OLMESARTAN MEDOXOMIL
     Indication: BLOOD PRESSURE ABNORMAL
     Dosage: 40 MG/12.5 MG; IN THE MORNING
     Route: 065
  17. LORAZEPAM. [Concomitant]
     Active Substance: LORAZEPAM
     Indication: ANXIETY
     Dosage: 1 TABLET ONCE A DAY AT BEDTIME IF NEEDED
     Route: 065
  18. LORAZEPAM. [Concomitant]
     Active Substance: LORAZEPAM
     Indication: INSOMNIA
     Dosage: 1 TABLET 4 TIMES A DAY IF NEEDED
     Route: 065
  19. INSULIN RAPID [Concomitant]
     Active Substance: INSULIN NOS
     Dosage: 15 U AT LUNCH, 15 U AT BREAKFAST AND 15 U AT DINNER
     Route: 065
  20. SALBUTAMOL [Concomitant]
     Active Substance: ALBUTEROL
     Indication: COUGH
     Dosage: SALBUTALMOL HFA 100 MCG; 2 INHALATION 4 TIMES A DAY IF NEEDED
     Route: 055
  21. INVOKANA [Suspect]
     Active Substance: CANAGLIFLOZIN
     Indication: PRODUCT USED FOR UNKNOWN INDICATION
     Route: 048
     Dates: start: 20151104, end: 20151208
  22. TRAZODONE [Concomitant]
     Active Substance: TRAZODONE HYDROCHLORIDE
     Indication: INSOMNIA
     Dosage: REGULARLY AT BEDTIME
     Route: 065
  23. JAMP ASA [Concomitant]
     Indication: CARDIOVASCULAR DISORDER
     Dosage: AT BREAKFAST REGULARLY
     Route: 065
  24. LYRICA [Concomitant]
     Active Substance: PREGABALIN
     Indication: PAIN
     Dosage: DAILY; REGULARLY AT BEDTIME
     Route: 065
  25. JAMP CALCIUM [Concomitant]
     Indication: OSTEOPOROSIS
     Dosage: AT BREAKFAST AND DINNER (EXCEPT ON MONDAY MORNING).
     Route: 065
  26. LORAZEPAM. [Concomitant]
     Active Substance: LORAZEPAM
     Indication: INSOMNIA
     Dosage: 1 TABLET ONCE A DAY AT BEDTIME IF NEEDED
     Route: 065
  27. PMS SENNOSIDES [Concomitant]
     Indication: CONSTIPATION
     Dosage: 1-2 TABLETS AT BEDTIME IF NEEDED
     Route: 065
  28. ADVAIR HFA [Concomitant]
     Active Substance: FLUTICASONE PROPIONATE\SALMETEROL XINAFOATE
     Dosage: 50+500 MCG POWDER; 1 INHALATION BY MOUTH THE MORNING AND EVENING REGULARLY (RINSE THE MOUTH)
     Route: 055
  29. ESTRACE [Concomitant]
     Active Substance: ESTRADIOL
     Dosage: AT BEDTIME
     Route: 065

REACTIONS (2)
  - Glomerular filtration rate decreased [Recovering/Resolving]
  - Renal failure [Recovered/Resolved]

NARRATIVE: CASE EVENT DATE: 20151208
